FAERS Safety Report 9310280 (Version 1)
Quarter: 2013Q2

REPORT INFORMATION
  Report Type: Spontaneous
  Country: DO (occurrence: DO)
  Receive Date: 20130527
  Receipt Date: 20130527
  Transmission Date: 20140414
  Serious: Yes (Hospitalization, Other)
  Sender: FDA-Public Use
  Company Number: PHHY2013DO052421

PATIENT
  Age: 83 Year
  Sex: Female

DRUGS (2)
  1. ACLASTA [Suspect]
     Indication: OSTEOPOROSIS
     Dosage: 5 MG, ANNUALLY
     Route: 042
  2. IBANDRONATE [Concomitant]
     Dosage: 150 MG, UNK
     Route: 048

REACTIONS (1)
  - Hip fracture [Recovering/Resolving]
